FAERS Safety Report 22814667 (Version 5)
Quarter: 2024Q2

REPORT INFORMATION
  Report Type: Other
  Country: CA (occurrence: CA)
  Receive Date: 20230811
  Receipt Date: 20240425
  Transmission Date: 20240715
  Serious: Yes (Death, Life-Threatening, Hospitalization, Disabling, Other)
  Sender: FDA-Public Use
  Company Number: CA-APOTEX-2023AP011614

PATIENT
  Age: 80 Year
  Sex: Male
  Weight: 69 kg

DRUGS (31)
  1. METRONIDAZOLE [Suspect]
     Active Substance: METRONIDAZOLE
     Indication: Off label use
     Dosage: UNK
     Route: 065
  2. METRONIDAZOLE [Suspect]
     Active Substance: METRONIDAZOLE
     Indication: Intentional product misuse
  3. METRONIDAZOLE [Suspect]
     Active Substance: METRONIDAZOLE
     Indication: Bacterial infection
  4. IPRATROPIUM [Suspect]
     Active Substance: IPRATROPIUM
     Indication: Sleep disorder therapy
     Dosage: UNK, QD
     Route: 065
  5. IPRATROPIUM [Suspect]
     Active Substance: IPRATROPIUM
     Indication: Dyspnoea
     Dosage: UNK, QD
  6. IPRATROPIUM [Suspect]
     Active Substance: IPRATROPIUM
     Indication: Off label use
     Dosage: 1 DOSAGE FORM
     Route: 050
  7. IPRATROPIUM [Suspect]
     Active Substance: IPRATROPIUM
     Indication: Intentional product misuse
     Dosage: 4 DOSAGE FORM, QD
  8. NITROGLYCERIN [Suspect]
     Active Substance: NITROGLYCERIN
     Indication: Product used for unknown indication
     Dosage: UNK
     Route: 065
  9. ALBUTEROL [Suspect]
     Active Substance: ALBUTEROL
     Indication: Prophylaxis
     Dosage: 4 DOSAGE FORM, QD
     Route: 065
  10. ALBUTEROL [Suspect]
     Active Substance: ALBUTEROL
     Indication: Off label use
     Dosage: 1 DOSAGE FORM, Q.6H
  11. ALBUTEROL [Suspect]
     Active Substance: ALBUTEROL
     Indication: Intentional product misuse
     Dosage: 1 DOSAGE FORM, Q.6H
     Route: 065
  12. ALBUTEROL [Suspect]
     Active Substance: ALBUTEROL
     Indication: Chronic obstructive pulmonary disease
  13. ALBUTEROL [Suspect]
     Active Substance: ALBUTEROL
     Indication: Asthma
  14. RAMIPRIL [Suspect]
     Active Substance: RAMIPRIL
     Indication: Prophylaxis
     Dosage: UNK
     Route: 065
  15. RAMIPRIL [Suspect]
     Active Substance: RAMIPRIL
     Indication: Asthma
     Dosage: UNK
     Route: 048
  16. BUDESONIDE [Suspect]
     Active Substance: BUDESONIDE
     Indication: Product used for unknown indication
     Dosage: UNK
     Route: 065
  17. CORTISONE (HYDROCORTISONE) [Suspect]
     Active Substance: HYDROCORTISONE
     Indication: Product used for unknown indication
     Dosage: UNK
     Route: 065
  18. EFINACONAZOLE [Suspect]
     Active Substance: EFINACONAZOLE
     Indication: Product used for unknown indication
     Dosage: UNK
     Route: 061
  19. PHYTONADIONE [Suspect]
     Active Substance: PHYTONADIONE
     Indication: Vitamin supplementation
     Dosage: 5 MILLIGRAM, PRN
     Route: 017
  20. PHYTONADIONE [Suspect]
     Active Substance: PHYTONADIONE
     Indication: Off label use
     Dosage: 5 MILLIGRAM
     Route: 017
  21. PHYTONADIONE [Suspect]
     Active Substance: PHYTONADIONE
     Indication: Analgesic therapy
     Dosage: 5 DOSAGE FORM
     Route: 017
  22. PHYTONADIONE [Suspect]
     Active Substance: PHYTONADIONE
     Dosage: UNK
     Route: 042
  23. PHYTONADIONE [Suspect]
     Active Substance: PHYTONADIONE
     Dosage: 5 DOSAGE FORM, QD
     Route: 042
  24. PHYTONADIONE [Suspect]
     Active Substance: PHYTONADIONE
     Dosage: 5 DOSAGE FORM
     Route: 042
  25. PHYTONADIONE [Suspect]
     Active Substance: PHYTONADIONE
     Dosage: 5 MILLIGRAM, QD
     Route: 065
  26. PHYTONADIONE [Suspect]
     Active Substance: PHYTONADIONE
     Dosage: 5 MILLIGRAM, PRN
     Route: 065
  27. VITAMIN K1 [Suspect]
     Active Substance: PHYTONADIONE
     Indication: Product used for unknown indication
     Dosage: UNK
     Route: 065
  28. ALBUTEROL SULFATE [Suspect]
     Active Substance: ALBUTEROL SULFATE
     Indication: Asthma
     Dosage: UNK
     Route: 065
  29. JUBLIA [Suspect]
     Active Substance: EFINACONAZOLE
     Indication: Product used for unknown indication
     Dosage: UNK
     Route: 061
  30. JUBLIA [Suspect]
     Active Substance: EFINACONAZOLE
     Dosage: 10 PERCENT
     Route: 061
  31. MESALAMINE [Suspect]
     Active Substance: MESALAMINE
     Indication: Product used for unknown indication
     Dosage: UNK
     Route: 065

REACTIONS (105)
  - Death [Fatal]
  - Abdominal distension [Unknown]
  - Abdominal pain [Unknown]
  - Anaemia [Unknown]
  - Analgesic therapy [Unknown]
  - Benign prostatic hyperplasia [Unknown]
  - Appendicitis [Unknown]
  - Appendicolith [Unknown]
  - Ascites [Unknown]
  - Aspiration [Unknown]
  - Asthma [Unknown]
  - Bacterial infection [Unknown]
  - Blood calcium increased [Unknown]
  - Blood cholesterol increased [Unknown]
  - Blood creatinine increased [Unknown]
  - Blood phosphorus increased [Unknown]
  - Blood test abnormal [Unknown]
  - Blood uric acid increased [Unknown]
  - Bronchiectasis [Unknown]
  - Bronchopulmonary aspergillosis allergic [Unknown]
  - Cardiogenic shock [Unknown]
  - Chronic obstructive pulmonary disease [Unknown]
  - Condition aggravated [Unknown]
  - Cough [Unknown]
  - Diabetes mellitus [Unknown]
  - Drug intolerance [Unknown]
  - Drug therapy [Unknown]
  - Fatigue [Unknown]
  - Gastrooesophageal reflux disease [Unknown]
  - Micturition urgency [Unknown]
  - General physical health deterioration [Unknown]
  - Haemoptysis [Unknown]
  - Hyperphosphataemia [Unknown]
  - Hyponatraemia [Unknown]
  - Hypophosphataemia [Unknown]
  - Hypoxia [Unknown]
  - Incorrect route of product administration [Unknown]
  - Intentional product misuse [Unknown]
  - Iron deficiency [Unknown]
  - Lower respiratory tract infection [Unknown]
  - Lung opacity [Unknown]
  - Multiple organ dysfunction syndrome [Unknown]
  - Pleuritic pain [Unknown]
  - Musculoskeletal stiffness [Unknown]
  - Malignant melanoma in situ [Unknown]
  - Myasthenia gravis [Unknown]
  - Breath sounds abnormal [Unknown]
  - Hypertension [Unknown]
  - Transient ischaemic attack [Unknown]
  - Dyspnoea exertional [Unknown]
  - Neuralgia [Unknown]
  - Obstructive airways disorder [Unknown]
  - Hypercholesterolaemia [Unknown]
  - Off label use [Unknown]
  - Pain [Unknown]
  - Pleural effusion [Unknown]
  - Pneumonia [Unknown]
  - Productive cough [Unknown]
  - Product dose omission issue [Unknown]
  - Product use in unapproved indication [Unknown]
  - Coronary artery disease [Unknown]
  - Pulmonary embolism [Unknown]
  - Pulmonary fibrosis [Unknown]
  - Pulmonary mass [Unknown]
  - Rales [Unknown]
  - Congenital hiatus hernia [Unknown]
  - Sepsis [Unknown]
  - Joint injury [Unknown]
  - Sleep disorder [Unknown]
  - Sleep disorder therapy [Unknown]
  - Sputum discoloured [Unknown]
  - Stress [Unknown]
  - Swelling [Unknown]
  - Thrombosis [Unknown]
  - Total lung capacity decreased [Unknown]
  - Full blood count abnormal [Unknown]
  - Tremor [Unknown]
  - Liver function test increased [Unknown]
  - Upper respiratory tract infection [Unknown]
  - Ventricular fibrillation [Unknown]
  - Dyspnoea [Unknown]
  - Wheezing [Unknown]
  - Abdominal pain upper [Unknown]
  - Asthenia [Unknown]
  - Activated partial thromboplastin time prolonged [Unknown]
  - Antacid therapy [Unknown]
  - Anticoagulant therapy [Unknown]
  - Aortic stenosis [Unknown]
  - End stage renal disease [Unknown]
  - Gout [Unknown]
  - Hyperlipidaemia [Unknown]
  - Ulcer [Unknown]
  - Aspartate aminotransferase increased [Unknown]
  - Vomiting [Unknown]
  - Transaminases increased [Unknown]
  - Somnolence [Unknown]
  - Pyrexia [Unknown]
  - Nausea [Unknown]
  - Headache [Unknown]
  - Dry mouth [Unknown]
  - Drug hypersensitivity [Unknown]
  - Constipation [Unknown]
  - Oedema peripheral [Unknown]
  - Drug ineffective [Unknown]
  - Therapeutic product effect incomplete [Unknown]
